FAERS Safety Report 12672995 (Version 2)
Quarter: 2016Q3

REPORT INFORMATION
  Report Type: Spontaneous
  Country: DE (occurrence: DE)
  Receive Date: 20160822
  Receipt Date: 20160906
  Transmission Date: 20161109
  Serious: Yes (Other)
  Sender: FDA-Public Use
  Company Number: DE-BAYER-2016-157340

PATIENT
  Age: 19 Year
  Sex: Female

DRUGS (4)
  1. MAXIM [Suspect]
     Active Substance: DIENOGEST\ETHINYL ESTRADIOL
     Indication: ORAL CONTRACEPTION
     Route: 048
  2. JAYDESS [Suspect]
     Active Substance: LEVONORGESTREL
     Indication: CONTRACEPTION
     Dosage: 14 MCG/24HR, CONT
     Route: 015
     Dates: start: 201410, end: 201608
  3. MINISISTON [Suspect]
     Active Substance: ETHINYL ESTRADIOL\LEVONORGESTREL
     Indication: MENSTRUAL CYCLE MANAGEMENT
     Dosage: UNK
     Route: 048
     Dates: start: 201606
  4. DOXYCYCLIN [Concomitant]
     Active Substance: DOXYCYCLINE
     Indication: MENSTRUAL CYCLE MANAGEMENT
     Dosage: UNK
     Dates: start: 201604

REACTIONS (9)
  - Malaise [None]
  - Vaginal haemorrhage [None]
  - Nausea [None]
  - Abdominal discomfort [None]
  - Off label use [None]
  - Cervical friability [None]
  - Breast discharge [None]
  - Vomiting [None]
  - Ovarian cyst [None]

NARRATIVE: CASE EVENT DATE: 201508
